FAERS Safety Report 8516579-4 (Version None)
Quarter: 2012Q3

REPORT INFORMATION
  Report Type: 
  Country: None (occurrence: None)
  Receive Date: 20120718
  Receipt Date: 20120712
  Transmission Date: 20120928
  Serious: Yes (Hospitalization, Other)
  Sender: FDA-Public Use
  Company Number: US-BAYER-2012-050214

PATIENT
  Age: 36 Year
  Sex: Female
  Weight: 89.796 kg

DRUGS (3)
  1. MIRENA [Suspect]
     Indication: CONTRACEPTION
     Dosage: 20 MCG/24HR, CONT
     Route: 015
     Dates: start: 20100320
  2. ATENOLOL [Concomitant]
  3. VITAMIN TAB [Concomitant]

REACTIONS (3)
  - PREGNANCY WITH CONTRACEPTIVE DEVICE [None]
  - PREMATURE RUPTURE OF MEMBRANES [None]
  - DEVICE DISLOCATION [None]
